FAERS Safety Report 5271220-1 (Version None)
Quarter: 2007Q1

REPORT INFORMATION
  Report Type: 
  Country: None (occurrence: None)
  Receive Date: 20061214
  Receipt Date: 20060901
  Transmission Date: 20070707
  Serious: Yes (Hospitalization, Disabling, Other)
  Sender: FDA-Public Use
  Company Number: 2006066080

PATIENT
  Age: 53 Year
  Sex: Female
  Weight: 97.5234 kg

DRUGS (1)
  1. BEXTRA [Suspect]
     Indication: OSTEOARTHRITIS
     Dosage: 10 MG (10 MG,1 IN 1 D)
     Dates: start: 20031004

REACTIONS (1)
  - DEEP VEIN THROMBOSIS [None]
